FAERS Safety Report 8366559-7 (Version None)
Quarter: 2012Q1

REPORT INFORMATION
  Report Type: 
  Country: None (occurrence: None)
  Receive Date: 20120323
  Receipt Date: 20110411
  Transmission Date: 20120608
  Serious: Yes (Other)
  Sender: FDA-Public Use
  Company Number: 163-21880-11041160

PATIENT
  Age: 57 Year
  Sex: Male

DRUGS (2)
  1. PROTONIX (PANTOPRAZOLE SODIUM)(UNKNOWN) [Concomitant]
  2. REVLIMID [Suspect]
     Indication: MULTIPLE MYELOMA
     Dosage: 25 MG,  DAILY FOR 21  DAYS, PO
     Route: 048
     Dates: start: 20110225, end: 20110101

REACTIONS (1)
  - FULL BLOOD COUNT DECREASED [None]
